FAERS Safety Report 9592992 (Version 1)
Quarter: 2013Q3

REPORT INFORMATION
  Report Type: Spontaneous
  Country: US (occurrence: None)
  Receive Date: 20130930
  Receipt Date: 20130930
  Transmission Date: 20140515
  Serious: Yes (Other)
  Sender: FDA-Public Use
  Company Number: 1000047300

PATIENT
  Age: 84 Year
  Sex: Female

DRUGS (5)
  1. LINZESS (LINACLOTIDE) (145 MICROGRAM, TABLETS) [Suspect]
     Indication: CONSTIPATION
     Dosage: 1 IN 1 D
     Route: 048
     Dates: start: 20130724
  2. JANUVIA [Concomitant]
  3. NORVASC [Concomitant]
  4. INDERAL [Concomitant]
  5. CARAFATE [Concomitant]

REACTIONS (2)
  - Frequent bowel movements [None]
  - Faeces discoloured [None]
